FAERS Safety Report 17835847 (Version 1)
Quarter: 2020Q2

REPORT INFORMATION
  Report Type: Spontaneous
  Country: US (occurrence: US)
  Receive Date: 20200528
  Receipt Date: 20200528
  Transmission Date: 20200714
  Serious: Yes (Other)
  Sender: FDA-Public Use
  Company Number: US-NAPPMUNDI-USA-2020-0152824

PATIENT
  Sex: Male

DRUGS (3)
  1. OXYCONTIN [Suspect]
     Active Substance: OXYCODONE HYDROCHLORIDE
     Indication: BACK PAIN
     Dosage: UNK
     Route: 048
  2. OXYIR [Suspect]
     Active Substance: OXYCODONE HYDROCHLORIDE
     Indication: BACK PAIN
     Dosage: UNK
     Route: 065
  3. OXYCODONE/ ACETAMINOPHEN TABLETS [Suspect]
     Active Substance: ACETAMINOPHEN\OXYCODONE HYDROCHLORIDE
     Indication: BACK PAIN
     Dosage: UNK
     Route: 048

REACTIONS (24)
  - Major depression [Unknown]
  - Erectile dysfunction [Unknown]
  - Near death experience [Unknown]
  - Rhinitis allergic [Unknown]
  - Headache [Unknown]
  - Peripheral vascular disorder [Unknown]
  - Gastrooesophageal reflux disease [Unknown]
  - Thermal burn [Unknown]
  - Burnout syndrome [Unknown]
  - Drug dependence [Unknown]
  - Tobacco abuse [Unknown]
  - Irritable bowel syndrome [Unknown]
  - Post-traumatic stress disorder [Unknown]
  - Cognitive disorder [Unknown]
  - Asthenia [Unknown]
  - Vitamin B12 deficiency [Unknown]
  - Gout [Unknown]
  - Testicular disorder [Unknown]
  - Type V hyperlipidaemia [Unknown]
  - Withdrawal syndrome [Unknown]
  - Peyronie^s disease [Unknown]
  - Impaired work ability [Unknown]
  - Essential hypertension [Unknown]
  - Peripheral arterial occlusive disease [Unknown]
